FAERS Safety Report 10067774 (Version 1)
Quarter: 2014Q2

REPORT INFORMATION
  Report Type: Report from Study
  Country: NL (occurrence: NL)
  Receive Date: 20140409
  Receipt Date: 20140409
  Transmission Date: 20141212
  Serious: Yes (Hospitalization)
  Sender: FDA-Public Use
  Company Number: PHHY2014NL041576

PATIENT
  Age: 54 Year
  Sex: Female

DRUGS (3)
  1. ZOMETA [Suspect]
     Indication: BREAST CANCER METASTATIC
     Dosage: 4 MG PER 100 ML 1X PER4WEEKS
     Route: 042
  2. ZOMETA [Suspect]
     Dosage: 4 MG PER 100 ML 1X PER4WEEKS
     Route: 042
     Dates: start: 20130923
  3. ZOMETA [Suspect]
     Dosage: 4 MG PER 100 ML 1X PER4WEEKS
     Route: 042
     Dates: start: 20140307

REACTIONS (1)
  - Pneumonia [Recovering/Resolving]
